FAERS Safety Report 16999894 (Version 2)
Quarter: 2020Q4

REPORT INFORMATION
  Report Type: Spontaneous
  Country: DE (occurrence: DE)
  Receive Date: 20191106
  Receipt Date: 20201127
  Transmission Date: 20210113
  Serious: Yes (Other)
  Sender: FDA-Public Use
  Company Number: DE-SA-2019SA304165

PATIENT

DRUGS (1)
  1. KARVEZIDE [Suspect]
     Active Substance: HYDROCHLOROTHIAZIDE\IRBESARTAN
     Dosage: 1 DF, QD
     Route: 065
     Dates: start: 201011

REACTIONS (6)
  - Erectile dysfunction [Not Recovered/Not Resolved]
  - Eye irritation [Unknown]
  - Pollakiuria [Not Recovered/Not Resolved]
  - Epistaxis [Unknown]
  - Dizziness [Unknown]
  - Sleep disorder [Not Recovered/Not Resolved]

NARRATIVE: CASE EVENT DATE: 201011
